FAERS Safety Report 22354817 (Version 1)
Quarter: 2023Q2

REPORT INFORMATION
  Report Type: Report from Study
  Country: US (occurrence: US)
  Receive Date: 20230523
  Receipt Date: 20230523
  Transmission Date: 20230721
  Serious: Yes (Other)
  Sender: FDA-Public Use
  Company Number: US-ABBVIE-4771240

PATIENT
  Age: 57 Year
  Sex: Female

DRUGS (2)
  1. RINVOQ [Suspect]
     Active Substance: UPADACITINIB
     Indication: Rheumatoid arthritis
     Dosage: LAST ADMIN DATE : 2023
     Route: 048
  2. RINVOQ [Suspect]
     Active Substance: UPADACITINIB
     Indication: Rheumatoid arthritis
     Dosage: FIRST ADMIN DATE : 2023
     Route: 048

REACTIONS (10)
  - Spinal operation [Unknown]
  - Skin exfoliation [Unknown]
  - Pruritus [Recovering/Resolving]
  - Alveolar osteitis [Unknown]
  - Migraine [Unknown]
  - Rash papular [Unknown]
  - Fungal infection [Unknown]
  - Skin burning sensation [Recovering/Resolving]
  - COVID-19 [Unknown]
  - Abscess [Unknown]

NARRATIVE: CASE EVENT DATE: 20230501
